FAERS Safety Report 18973238 (Version 4)
Quarter: 2023Q4

REPORT INFORMATION
  Report Type: Spontaneous
  Country: US (occurrence: US)
  Receive Date: 20210305
  Receipt Date: 20231026
  Transmission Date: 20240110
  Serious: Yes (Hospitalization, Disabling, Other)
  Sender: FDA-Public Use
  Company Number: US-ORGANON-O2103USA000520

PATIENT
  Sex: Female

DRUGS (1)
  1. SINGULAIR [Suspect]
     Active Substance: MONTELUKAST SODIUM
     Indication: Hypersensitivity
     Dosage: TAKE ONE TABLET DAILY
     Route: 048
     Dates: start: 2000, end: 2020

REACTIONS (12)
  - Neuropsychological symptoms [Not Recovered/Not Resolved]
  - Arthropathy [Not Recovered/Not Resolved]
  - Arthritis [Not Recovered/Not Resolved]
  - Tic [Not Recovered/Not Resolved]
  - Depression [Not Recovered/Not Resolved]
  - Suicidal ideation [Unknown]
  - Hip arthroplasty [Unknown]
  - Hip arthroplasty [Unknown]
  - Surgery [Unknown]
  - Anxiety [Not Recovered/Not Resolved]
  - Bruxism [Not Recovered/Not Resolved]
  - Tremor [Unknown]

NARRATIVE: CASE EVENT DATE: 20030101
